FAERS Safety Report 6221775-5 (Version None)
Quarter: 2009Q2

REPORT INFORMATION
  Report Type: 
  Country: None (occurrence: None)
  Receive Date: 20090608
  Receipt Date: 20090521
  Transmission Date: 20091009
  Serious: Yes (Hospitalization)
  Sender: FDA-Public Use
  Company Number: 2008AL009195

PATIENT
  Age: 66 Year
  Sex: Female

DRUGS (18)
  1. DIGOXIN [Suspect]
     Dosage: 0.125MG, DAILY, PO
     Route: 048
     Dates: start: 20070101, end: 20070501
  2. EXELON [Concomitant]
  3. PREVACID [Concomitant]
  4. SULFAMETHOXAZOLE AND TRIMETHOPRIM [Concomitant]
  5. CYMBALTA [Concomitant]
  6. HYDROCODONE BITARTRATE [Concomitant]
  7. ZYRTEC [Concomitant]
  8. KLOR-CON [Concomitant]
  9. ALPRAZOLAM [Concomitant]
  10. SPIRONOLACTONE [Concomitant]
  11. FUROSEMIDE [Concomitant]
  12. MORPHINE [Concomitant]
  13. RISPERDAL [Concomitant]
  14. LORAZEPAM [Concomitant]
  15. FOLITAB [Concomitant]
  16. MINITRAN [Concomitant]
  17. COREG [Concomitant]
  18. BONIVA [Concomitant]

REACTIONS (20)
  - ARM AMPUTATION [None]
  - ASTHENIA [None]
  - ATRIAL FLUTTER [None]
  - ATRIOVENTRICULAR BLOCK [None]
  - AV DISSOCIATION [None]
  - BRADYCARDIA [None]
  - CARDIOMYOPATHY [None]
  - DIZZINESS [None]
  - DYSPNOEA [None]
  - FALL [None]
  - HEART RATE DECREASED [None]
  - HIP FRACTURE [None]
  - JOINT INJURY [None]
  - LOWER LIMB FRACTURE [None]
  - MULTIPLE INJURIES [None]
  - SYNCOPE [None]
  - TACHYARRHYTHMIA [None]
  - TACHYCARDIA [None]
  - THERAPEUTIC AGENT TOXICITY [None]
  - UPPER LIMB FRACTURE [None]
